FAERS Safety Report 13347049 (Version 1)
Quarter: 2017Q1

REPORT INFORMATION
  Report Type: Spontaneous
  Country: CA (occurrence: CA)
  Receive Date: 20170317
  Receipt Date: 20170317
  Transmission Date: 20170428
  Serious: Yes (Other)
  Sender: FDA-Public Use
  Company Number: CA-APOTEX-2017AP008212

PATIENT
  Age: 13 Month
  Sex: Male

DRUGS (3)
  1. TACROLIMUS. [Suspect]
     Active Substance: TACROLIMUS
     Indication: GLOMERULONEPHROPATHY
     Route: 065
  2. CYCLOSPORINE. [Suspect]
     Active Substance: CYCLOSPORINE
     Indication: GLOMERULONEPHROPATHY
     Route: 065
  3. PREDNISONE. [Concomitant]
     Active Substance: PREDNISONE
     Indication: PRODUCT USED FOR UNKNOWN INDICATION
     Route: 065

REACTIONS (13)
  - Partial seizures [Recovered/Resolved]
  - Pleural effusion [Recovering/Resolving]
  - Ascites [Unknown]
  - Muscular weakness [Recovered/Resolved]
  - Rash generalised [Recovering/Resolving]
  - Idiosyncratic drug reaction [Recovering/Resolving]
  - Pericardial effusion [Recovering/Resolving]
  - Failure to thrive [Recovering/Resolving]
  - Gingival hypertrophy [Unknown]
  - Hypertrichosis [Unknown]
  - Condition aggravated [Recovering/Resolving]
  - Vasculitis [Recovering/Resolving]
  - Gastroenteritis eosinophilic [Recovering/Resolving]
